FAERS Safety Report 13342387 (Version 2)
Quarter: 2017Q2

REPORT INFORMATION
  Report Type: Spontaneous
  Country: US (occurrence: US)
  Receive Date: 20170316
  Receipt Date: 20170419
  Transmission Date: 20170830
  Serious: No
  Sender: FDA-Public Use
  Company Number: US-BAYER-2017-044878

PATIENT
  Age: 86 Year
  Sex: Male
  Weight: 84 kg

DRUGS (3)
  1. MIRALAX [Suspect]
     Active Substance: POLYETHYLENE GLYCOL 3350
     Indication: GASTROINTESTINAL DISORDER
     Dosage: UNK (1 FULL DOSE)
     Route: 048
     Dates: start: 20170307, end: 20170307
  2. MIRALAX [Suspect]
     Active Substance: POLYETHYLENE GLYCOL 3350
     Indication: CONSTIPATION
     Dosage: UNK
     Route: 048
     Dates: start: 201703
  3. MIRALAX [Suspect]
     Active Substance: POLYETHYLENE GLYCOL 3350
     Indication: CONSTIPATION
     Dosage: 1 DF, QD
     Route: 048
     Dates: start: 201612

REACTIONS (11)
  - Faeces soft [Not Recovered/Not Resolved]
  - Abnormal faeces [Recovered/Resolved]
  - Incorrect dose administered [Unknown]
  - Faeces soft [Recovered/Resolved]
  - Product use issue [Unknown]
  - Product use issue [Unknown]
  - Abnormal faeces [Not Recovered/Not Resolved]
  - Off label use [None]
  - Product use issue [Unknown]
  - Frequent bowel movements [Recovered/Resolved]
  - Product use in unapproved indication [Unknown]

NARRATIVE: CASE EVENT DATE: 201612
